FAERS Safety Report 21764197 (Version 1)
Quarter: 2022Q4

REPORT INFORMATION
  Report Type: Spontaneous
  Country: CN (occurrence: CN)
  Receive Date: 20221222
  Receipt Date: 20221222
  Transmission Date: 20230113
  Serious: Yes (Hospitalization)
  Sender: FDA-Public Use
  Company Number: CN-SA-SAC20221219001290

PATIENT
  Age: 89 Year
  Sex: Female

DRUGS (2)
  1. CLOPIDOGREL BISULFATE [Suspect]
     Active Substance: CLOPIDOGREL BISULFATE
     Indication: Coronary artery disease
     Dosage: 75 MG, QD
     Route: 048
     Dates: start: 20221205, end: 20221207
  2. LIGUSTRAZINE PHOSPHATE [Concomitant]
     Active Substance: LIGUSTRAZINE PHOSPHATE
     Indication: Cerebral infarction
     Dosage: 100 MG, QD
     Route: 041
     Dates: start: 20221205, end: 20221207

REACTIONS (1)
  - Platelet count decreased [Not Recovered/Not Resolved]

NARRATIVE: CASE EVENT DATE: 20221206
